FAERS Safety Report 16065707 (Version 3)
Quarter: 2019Q2

REPORT INFORMATION
  Report Type: Spontaneous
  Country: JP (occurrence: JP)
  Receive Date: 20190313
  Receipt Date: 20190521
  Transmission Date: 20190711
  Serious: Yes (Other)
  Sender: FDA-Public Use
  Company Number: JP-ABBVIE-19P-087-2702552-00

PATIENT
  Age: 45 Year
  Sex: Female
  Weight: 53 kg

DRUGS (7)
  1. LEUPLIN [Suspect]
     Active Substance: LEUPROLIDE ACETATE
     Indication: PREMEDICATION
     Dosage: 3.75 MILLIGRAM, Q4WEEKS
     Route: 058
     Dates: start: 20170513, end: 20171005
  2. TRANSAMIN [Concomitant]
     Active Substance: TRANEXAMIC ACID
     Indication: PRODUCT USED FOR UNKNOWN INDICATION
     Dosage: 1.5 GRAM
     Route: 048
     Dates: start: 20180213, end: 20190209
  3. LEUPLIN [Suspect]
     Active Substance: LEUPROLIDE ACETATE
     Dosage: 3.75 MILLIGRAM, Q4WEEKS
     Route: 058
     Dates: start: 20181117, end: 20190209
  4. FERROMIA [Concomitant]
     Active Substance: SODIUM FERROUS CITRATE
     Indication: PRODUCT USED FOR UNKNOWN INDICATION
     Dosage: 2 DOSAGE FORM
     Route: 048
     Dates: start: 20180120, end: 20180615
  5. FESIN                              /00023550/ [Concomitant]
     Active Substance: IRON SUCROSE
     Dosage: 3 DOSAGE FORM
     Route: 042
     Dates: start: 20190304
  6. FESIN                              /00023550/ [Concomitant]
     Active Substance: IRON SUCROSE
     Indication: PRODUCT USED FOR UNKNOWN INDICATION
     Dosage: 1 DOSAGE FORM
     Route: 042
     Dates: start: 20170520, end: 20170805
  7. FERROMIA [Concomitant]
     Active Substance: SODIUM FERROUS CITRATE
     Dosage: 2 DOSAGE FORM
     Route: 048
     Dates: start: 20180804, end: 20190112

REACTIONS (4)
  - Haemorrhage [Unknown]
  - Iron deficiency anaemia [Unknown]
  - Menometrorrhagia [Unknown]
  - Metrorrhagia [Unknown]

NARRATIVE: CASE EVENT DATE: 20180109
